FAERS Safety Report 6628034-7 (Version None)
Quarter: 2010Q1

REPORT INFORMATION
  Report Type: 
  Country: None (occurrence: None)
  Receive Date: 20100311
  Receipt Date: 20090707
  Transmission Date: 20100710
  Serious: No
  Sender: FDA-Public Use
  Company Number: A0795682A

PATIENT
  Age: 45 Year
  Sex: Male

DRUGS (2)
  1. NICORETTE (MINT) [Suspect]
  2. NICODERM CQ [Suspect]
     Dates: start: 20090622, end: 20090623

REACTIONS (2)
  - DRUG INEFFECTIVE [None]
  - FATIGUE [None]
